FAERS Safety Report 5307898-3 (Version None)
Quarter: 2007Q2

REPORT INFORMATION
  Report Type: 
  Country: None (occurrence: None)
  Receive Date: 20070420
  Receipt Date: 20070409
  Transmission Date: 20071010
  Serious: Yes (Life-Threatening, Other)
  Sender: FDA-Public Use
  Company Number: TRP_0923_2007

PATIENT
  Age: 55 Year
  Sex: Male
  Weight: 68.9467 kg

DRUGS (4)
  1. RIBASPHERE [Suspect]
     Indication: HEPATITIS C
     Dosage: 600 MG BID PO
     Route: 048
     Dates: start: 20050708, end: 20050816
  2. PEG-INTRON [Suspect]
     Indication: HEPATITIS C
     Dosage: 120 MCG QWK SC
     Route: 058
     Dates: start: 20050708, end: 20051125
  3. BENICAR [Concomitant]
  4. COLCHICINE [Concomitant]

REACTIONS (9)
  - ARTHRITIS [None]
  - BONE MARROW FAILURE [None]
  - CEREBROVASCULAR ACCIDENT [None]
  - DIZZINESS [None]
  - DYSPNOEA [None]
  - ECONOMIC PROBLEM [None]
  - HAEMOLYTIC ANAEMIA [None]
  - HEPATITIS A ANTIBODY POSITIVE [None]
  - IMPAIRED WORK ABILITY [None]
